FAERS Safety Report 22306765 (Version 1)
Quarter: 2023Q2

REPORT INFORMATION
  Report Type: Other
  Country: ZA (occurrence: None)
  Receive Date: 20230511
  Receipt Date: 20230511
  Transmission Date: 20230721
  Serious: Yes (Other)
  Sender: FDA-Public Use
  Company Number: ZA-ROCHE-3084827

PATIENT
  Age: 47 Year
  Sex: Female

DRUGS (2)
  1. OCREVUS [Suspect]
     Active Substance: OCRELIZUMAB
     Indication: Relapsing-remitting multiple sclerosis
     Dosage: THEREAFTER 600MG EVERY 6 MONTHS, YES
     Route: 041
     Dates: start: 202104
  2. AUBAGIO [Concomitant]
     Active Substance: TERIFLUNOMIDE

REACTIONS (17)
  - Multiple sclerosis [Unknown]
  - Intervertebral disc protrusion [Unknown]
  - Mastoiditis [Unknown]
  - Muscular weakness [Unknown]
  - Intention tremor [Unknown]
  - Decreased vibratory sense [Unknown]
  - Central pain syndrome [Unknown]
  - Hypoaesthesia [Unknown]
  - Gait disturbance [Unknown]
  - Magnetic resonance imaging head abnormal [Unknown]
  - Multiple sclerosis [Unknown]
  - Intervertebral disc degeneration [Unknown]
  - Vertebral foraminal stenosis [Unknown]
  - Cerebral disorder [Unknown]
  - Magnetic resonance imaging [Unknown]
  - White matter lesion [Unknown]
  - Infection [Unknown]
